FAERS Safety Report 14543711 (Version 2)
Quarter: 2018Q2

REPORT INFORMATION
  Report Type: Spontaneous
  Country: CH (occurrence: CH)
  Receive Date: 20180216
  Receipt Date: 20180412
  Transmission Date: 20180711
  Serious: Yes (Other)
  Sender: FDA-Public Use
  Company Number: CH-GEHC-2018CSU000637

PATIENT

DRUGS (4)
  1. DESLORATADIN [Concomitant]
     Active Substance: DESLORATADINE
  2. VISIPAQUE [Suspect]
     Active Substance: IODIXANOL
     Indication: PULMONARY EMBOLISM
     Dosage: 100 ML, SINGLE
     Route: 042
     Dates: start: 20180122, end: 20180122
  3. CORTISON [Suspect]
     Active Substance: CORTISONE ACETATE
     Indication: HYPERSENSITIVITY
     Dosage: UNK
     Route: 065
     Dates: start: 20180123, end: 20180123
  4. VISANNE [Concomitant]
     Active Substance: DIENOGEST
     Indication: ENDOMETRIOSIS

REACTIONS (2)
  - Hypersensitivity [Recovered/Resolved]
  - Hypersensitivity [Recovered/Resolved]

NARRATIVE: CASE EVENT DATE: 20180122
